FAERS Safety Report 9171217 (Version 1)
Quarter: 2013Q1

REPORT INFORMATION
  Report Type: Spontaneous
  Country: US (occurrence: None)
  Receive Date: 20130318
  Receipt Date: 20130318
  Transmission Date: 20140127
  Serious: Yes (Other)
  Sender: FDA-Public Use
  Company Number: None

PATIENT
  Age: 69 Year
  Sex: Female
  Weight: 62.6 kg

DRUGS (1)
  1. COZAAR [Suspect]
     Dates: start: 201204, end: 201302

REACTIONS (5)
  - Gastritis [None]
  - Diarrhoea [None]
  - Sinus disorder [None]
  - Nasopharyngitis [None]
  - Nausea [None]
